FAERS Safety Report 14933920 (Version 1)
Quarter: 2018Q2

REPORT INFORMATION
  Report Type: Spontaneous
  Country: BE (occurrence: BE)
  Receive Date: 20180524
  Receipt Date: 20180524
  Transmission Date: 20180711
  Serious: Yes (Life-Threatening, Other)
  Sender: FDA-Public Use
  Company Number: BE-MYLANLABS-2018M1022781

PATIENT
  Sex: Male
  Weight: 2.7 kg

DRUGS (16)
  1. L-THYROXINE                        /00068001/ [Suspect]
     Active Substance: LEVOTHYROXINE
     Indication: FOETAL EXPOSURE DURING PREGNANCY
     Dosage: 50 MG, QD
     Route: 064
  2. NASONEX [Suspect]
     Active Substance: MOMETASONE FUROATE
     Indication: FOETAL EXPOSURE DURING PREGNANCY
     Dosage: MATERNAL DOSE: TWICE DAILY
     Route: 064
  3. NASONEX [Suspect]
     Active Substance: MOMETASONE FUROATE
     Indication: FOETAL EXPOSURE DURING PREGNANCY
  4. SERETIDE [Suspect]
     Active Substance: FLUTICASONE PROPIONATE\SALMETEROL XINAFOATE
     Indication: FOETAL EXPOSURE DURING PREGNANCY
     Dosage: 500 MG, BID
     Route: 064
  5. AERIUS [Suspect]
     Active Substance: DESLORATADINE
     Indication: FOETAL EXPOSURE DURING PREGNANCY
     Dosage: 15 MG, TID
     Route: 064
  6. AMOXICILLIN TRIHYDRATE W/CLAVULANIC ACID [Suspect]
     Active Substance: AMOXICILLIN\CLAVULANIC ACID
     Indication: FOETAL EXPOSURE DURING PREGNANCY
     Dosage: 875 MG, TID
     Route: 064
  7. TRECLINAX [Suspect]
     Active Substance: CLINDAMYCIN PHOSPHATE\TRETINOIN
     Indication: FOETAL EXPOSURE DURING PREGNANCY
     Dosage: MATERNAL DOSE: ONCE DAILY
     Route: 064
  8. CELESTONE [Suspect]
     Active Substance: BETAMETHASONE
     Indication: FOETAL EXPOSURE DURING PREGNANCY
     Dosage: UNK
     Route: 064
  9. FEROGRAD [Suspect]
     Active Substance: ASCORBIC ACID\FERROUS SULFATE
     Indication: FOETAL EXPOSURE DURING PREGNANCY
     Dosage: 1 DF, QD
     Route: 064
  10. PANTOMED                           /01263204/ [Suspect]
     Active Substance: PANTOPRAZOLE SODIUM
     Indication: FOETAL EXPOSURE DURING PREGNANCY
     Dosage: 1 DF, QD
     Route: 064
  11. XOLAIR [Suspect]
     Active Substance: OMALIZUMAB
     Indication: FOETAL EXPOSURE DURING PREGNANCY
     Dosage: MATERNAL DOSE: 300 MG, QMO
     Route: 064
  12. ASPIRIN                            /00002701/ [Suspect]
     Active Substance: ASPIRIN
     Indication: FOETAL EXPOSURE DURING PREGNANCY
     Dosage: MATERNAL DOSE 100 MG
     Route: 064
  13. PANTOPRAZOLE [Suspect]
     Active Substance: PANTOPRAZOLE
     Indication: FOETAL EXPOSURE DURING PREGNANCY
     Dosage: 300 MG, MONTHLY
     Route: 064
  14. CLINDAMYCIN. [Suspect]
     Active Substance: CLINDAMYCIN
     Indication: FOETAL EXPOSURE DURING PREGNANCY
     Dosage: 1 DF, QD
     Route: 064
  15. AUGMENTIN [Suspect]
     Active Substance: AMOXICILLIN\CLAVULANATE POTASSIUM
     Indication: FOETAL EXPOSURE DURING PREGNANCY
     Dosage: MATERNAL DOSE: 875 MG, TID
     Route: 064
  16. VENTOLIN [Suspect]
     Active Substance: ALBUTEROL SULFATE
     Indication: FOETAL EXPOSURE DURING PREGNANCY
     Dosage: MATERNAL DOE: AS NEEDED
     Route: 064

REACTIONS (4)
  - Maternal drugs affecting foetus [None]
  - Foetal exposure during pregnancy [Unknown]
  - Premature baby [Unknown]
  - Respiratory distress [Unknown]

NARRATIVE: CASE EVENT DATE: 20170112
